FAERS Safety Report 9243706 (Version 2)
Quarter: 2013Q2

REPORT INFORMATION
  Report Type: Spontaneous
  Country: US (occurrence: None)
  Receive Date: 20121123
  Receipt Date: 20130225
  Transmission Date: 20140414
  Serious: No
  Sender: FDA-Public Use
  Company Number: 356827

PATIENT
  Age: 64 Year
  Sex: Female

DRUGS (2)
  1. VICTOZA [Suspect]
     Indication: TYPE 2 DIABETES MELLITUS
     Route: 058
     Dates: start: 20120726
  2. NOVOLOG MIX 70/30 (INSULIN ASPART) SUSPENSION FOR INJECTION, 100 U/ML [Concomitant]

REACTIONS (5)
  - Pain [None]
  - Dizziness [None]
  - Aphagia [None]
  - Nausea [None]
  - Blood glucose fluctuation [None]
